FAERS Safety Report 19261278 (Version 6)
Quarter: 2022Q2

REPORT INFORMATION
  Report Type: Report from Study
  Country: US (occurrence: US)
  Receive Date: 20210515
  Receipt Date: 20220614
  Transmission Date: 20220721
  Serious: Yes (Hospitalization, Other)
  Sender: FDA-Public Use
  Company Number: US-SHIRE-US202017558

PATIENT
  Sex: Female

DRUGS (4)
  1. HUMAN IMMUNOGLOBULIN G [Suspect]
     Active Substance: HUMAN IMMUNOGLOBULIN G
     Indication: Primary immunodeficiency syndrome
     Route: 065
  2. COVID-19 VACCINE NOS [Suspect]
     Active Substance: COVID-19 VACCINE NOS
     Indication: Immunisation
     Route: 065
  3. JARDIANCE [Concomitant]
     Active Substance: EMPAGLIFLOZIN
     Indication: Diabetes mellitus
  4. FASENRA [Concomitant]
     Active Substance: BENRALIZUMAB

REACTIONS (25)
  - Sepsis [Unknown]
  - Diabetes mellitus [Unknown]
  - Blood glucose fluctuation [Unknown]
  - Ingrowing nail [Unknown]
  - Gait inability [Unknown]
  - Blood pressure increased [Unknown]
  - Pyrexia [Unknown]
  - Dyspnoea [Unknown]
  - Chills [Unknown]
  - Pruritus [Unknown]
  - Macular degeneration [Unknown]
  - Infection [Unknown]
  - Upper respiratory tract infection [Unknown]
  - Eyelid infection [Unknown]
  - Anal infection [Unknown]
  - Dysphonia [Unknown]
  - Injection site haemorrhage [Unknown]
  - Hiatus hernia [Unknown]
  - Gastrooesophageal reflux disease [Unknown]
  - Limb operation [Unknown]
  - Fatigue [Unknown]
  - Skin infection [Unknown]
  - Skin injury [Unknown]
  - Blood glucose increased [Unknown]
  - Inappropriate schedule of product administration [Unknown]
